FAERS Safety Report 17020559 (Version 2)
Quarter: 2020Q2

REPORT INFORMATION
  Report Type: Spontaneous
  Country: US (occurrence: US)
  Receive Date: 20191112
  Receipt Date: 20200626
  Transmission Date: 20200713
  Serious: Yes (Other)
  Sender: FDA-Public Use
  Company Number: US-PFIZER INC-2019486703

PATIENT
  Sex: Male

DRUGS (1)
  1. CHANTIX [Suspect]
     Active Substance: VARENICLINE TARTRATE
     Indication: SMOKING CESSATION THERAPY
     Dosage: 1 MG, 2X/DAY (1MG TABLET IN THE MORNING AND THE EVENING)
     Route: 064
     Dates: start: 201910

REACTIONS (2)
  - Foetal growth abnormality [Unknown]
  - Maternal exposure during pregnancy [Unknown]
